FAERS Safety Report 11753874 (Version 1)
Quarter: 2015Q4

REPORT INFORMATION
  Report Type: Report from Study
  Country: DE (occurrence: DE)
  Receive Date: 20151119
  Receipt Date: 20151119
  Transmission Date: 20160304
  Serious: Yes (Death, Disabling)
  Sender: FDA-Public Use
  Company Number: DE-BAYER-2015-465754

PATIENT
  Age: 71 Year
  Sex: Male
  Weight: 62 kg

DRUGS (13)
  1. XOFIGO [Suspect]
     Active Substance: RADIUM RA-223 DICHLORIDE
     Indication: PROSTATE CANCER METASTATIC
     Dosage: 2.975 MBQ, QD
     Dates: start: 20150625, end: 20150625
  2. XOFIGO [Suspect]
     Active Substance: RADIUM RA-223 DICHLORIDE
     Indication: PROSTATE CANCER METASTATIC
     Dosage: 3.1 MBQ, QD
     Dates: start: 20150430, end: 20150430
  3. M-BETA [Concomitant]
     Dosage: 10 MG, BID
     Route: 048
     Dates: start: 2015
  4. DICLOFENAC [Concomitant]
     Active Substance: DICLOFENAC
     Dosage: 50MG 2X1
     Dates: start: 2015
  5. RAMIPLUS AL [Concomitant]
     Dosage: 5/25MG, QD
     Dates: start: 2000
  6. TORASEMID [Concomitant]
     Active Substance: TORSEMIDE
     Dosage: 5 MG, QD
     Dates: start: 1997
  7. PREDNISOLON [Concomitant]
     Active Substance: PREDNISOLONE
     Dosage: 5 MG, QD
     Dates: start: 201501
  8. CALCIUM [Concomitant]
     Active Substance: CALCIUM
     Dosage: 1000MG
     Dates: start: 2008
  9. METOPROLOL [Concomitant]
     Active Substance: METOPROLOL
     Dosage: 50 MG, BID
     Dates: start: 2000
  10. ALLOPURINOL. [Concomitant]
     Active Substance: ALLOPURINOL
     Dosage: 100MG
     Dates: start: 2000
  11. XOFIGO [Suspect]
     Active Substance: RADIUM RA-223 DICHLORIDE
     Indication: PROSTATE CANCER METASTATIC
     Dosage: 3.1 MBQ, QD
     Dates: start: 20150528, end: 20150528
  12. XOFIGO [Suspect]
     Active Substance: RADIUM RA-223 DICHLORIDE
     Indication: PROSTATE CANCER METASTATIC
     Dosage: 3.15 MBQ, QD
     Dates: start: 20150723, end: 20150723
  13. RAMIPRIL. [Concomitant]
     Active Substance: RAMIPRIL
     Dosage: 5MG
     Dates: start: 2000

REACTIONS (1)
  - Pancytopenia [Fatal]

NARRATIVE: CASE EVENT DATE: 20150820
